FAERS Safety Report 10803641 (Version 1)
Quarter: 2015Q1

REPORT INFORMATION
  Report Type: Spontaneous
  Country: US (occurrence: US)
  Receive Date: 20150217
  Receipt Date: 20150217
  Transmission Date: 20150721
  Serious: No
  Sender: FDA-Public Use
  Company Number: US-GLAXOSMITHKLINE-US2014011228

PATIENT
  Sex: Female

DRUGS (12)
  1. FLOVENT DISKUS [Suspect]
     Active Substance: FLUTICASONE PROPIONATE
     Indication: ASTHMA
     Dosage: 110 MCG
     Route: 055
     Dates: start: 2001
  2. VITAMIN B COMPLEX [Concomitant]
     Active Substance: CYANOCOBALAMIN\DEXPANTHENOL\NIACINAMIDE\PYRIDOXINE HYDROCHLORIDE\RIBOFLAVIN 5^-PHOSPHATE SODIUM\THIAMINE HYDROCHLORIDE\VITAMIN B COMPLEX
  3. SINGULAIR [Concomitant]
     Active Substance: MONTELUKAST SODIUM
  4. IMDUR [Concomitant]
     Active Substance: ISOSORBIDE MONONITRATE
  5. CLINDAMYCIN [Concomitant]
     Active Substance: CLINDAMYCIN\CLINDAMYCIN PHOSPHATE
  6. ZOCOR [Concomitant]
     Active Substance: SIMVASTATIN
  7. ALPHA LIPOIC ACID [Concomitant]
     Active Substance: .ALPHA.-LIPOIC ACID
  8. TOPROL XL [Concomitant]
     Active Substance: METOPROLOL SUCCINATE
  9. VITAMIN D3 [Concomitant]
     Active Substance: CHOLECALCIFEROL
  10. PROAIR HFA [Suspect]
     Active Substance: ALBUTEROL SULFATE
     Dates: start: 2001
  11. PROAIR HFA [Suspect]
     Active Substance: ALBUTEROL SULFATE
     Dates: start: 2001
  12. FLOVENT DISKUS [Suspect]
     Active Substance: FLUTICASONE PROPIONATE
     Dosage: 110 MCG
     Route: 055
     Dates: start: 2001

REACTIONS (6)
  - Cyst [Unknown]
  - Upper limb fracture [Unknown]
  - Cataract [Not Recovered/Not Resolved]
  - Breath odour [Not Recovered/Not Resolved]
  - Pain in extremity [Recovering/Resolving]
  - Elbow operation [Recovering/Resolving]

NARRATIVE: CASE EVENT DATE: 2001
